FAERS Safety Report 11596265 (Version 8)
Quarter: 2020Q1

REPORT INFORMATION
  Report Type: Spontaneous
  Country: BR (occurrence: BR)
  Receive Date: 20151006
  Receipt Date: 20200116
  Transmission Date: 20200409
  Serious: Yes (Hospitalization, Other)
  Sender: FDA-Public Use
  Company Number: BR-JNJFOC-20151001239

PATIENT
  Sex: Female
  Weight: 56 kg

DRUGS (21)
  1. FUROSEMIDE. [Concomitant]
     Active Substance: FUROSEMIDE
     Route: 065
  2. AMLODIPINE [Concomitant]
     Active Substance: AMLODIPINE BESYLATE
     Route: 065
  3. VENULA [Concomitant]
     Route: 065
  4. GABALLON [Concomitant]
     Route: 065
  5. HYDROCHLOROTHIAZIDE. [Concomitant]
     Active Substance: HYDROCHLOROTHIAZIDE
     Route: 065
  6. METFORMIN HYDROCHLORIDE. [Concomitant]
     Active Substance: METFORMIN HYDROCHLORIDE
     Route: 065
  7. FAMOTIDINE. [Concomitant]
     Active Substance: FAMOTIDINE
     Route: 065
  8. COLAZAL [Concomitant]
     Active Substance: BALSALAZIDE DISODIUM
     Route: 065
  9. METHYLPREDNISOLONE. [Concomitant]
     Active Substance: METHYLPREDNISOLONE
     Route: 065
  10. MELOXICAM. [Concomitant]
     Active Substance: MELOXICAM
     Route: 065
  11. SIMPONI [Suspect]
     Active Substance: GOLIMUMAB
     Indication: RHEUMATOID ARTHRITIS
     Route: 058
     Dates: start: 20131012, end: 20160331
  12. SIMPONI [Suspect]
     Active Substance: GOLIMUMAB
     Route: 058
  13. DOMPERIDONE [Concomitant]
     Active Substance: DOMPERIDONE
     Route: 065
  14. SELOZOK [Concomitant]
     Active Substance: METOPROLOL SUCCINATE
     Route: 065
  15. VITERGAN MASTER [Concomitant]
     Route: 065
  16. PREDSIM [Concomitant]
     Active Substance: PREDNISOLONE
  17. SIMVASTATIN. [Concomitant]
     Active Substance: SIMVASTATIN
     Route: 065
  18. CHLOROQUINE DIPHOSPHATE [Concomitant]
     Active Substance: CHLOROQUINE PHOSPHATE
     Route: 065
  19. ENALAPRIL [Concomitant]
     Active Substance: ENALAPRIL
     Route: 065
  20. ENALAPRIL [Concomitant]
     Active Substance: ENALAPRIL
     Route: 065
  21. AAS [Concomitant]
     Active Substance: ASPIRIN
     Route: 065

REACTIONS (7)
  - Cardiac operation [Unknown]
  - Diabetes mellitus [Unknown]
  - Rheumatoid arthritis [Recovered/Resolved]
  - Peripheral swelling [Unknown]
  - Pain [Unknown]
  - Cerebrovascular accident [Unknown]
  - Blood pressure fluctuation [Unknown]

NARRATIVE: CASE EVENT DATE: 2014
